FAERS Safety Report 13886134 (Version 8)
Quarter: 2021Q3

REPORT INFORMATION
  Report Type: Report from Study
  Country: None (occurrence: CA)
  Receive Date: 20170821
  Receipt Date: 20210909
  Transmission Date: 20211014
  Serious: Yes (Death, Hospitalization, Other)
  Sender: FDA-Public Use
  Company Number: CA-ABBVIE-17P-028-2071778-00

PATIENT
  Age: 75 Year
  Sex: Male
  Weight: 77.5 kg

DRUGS (15)
  1. SALBUTAMOL?INH [Concomitant]
     Indication: PRODUCT USED FOR UNKNOWN INDICATION
     Dosage: PRN: AS REQUIRED
     Route: 055
  2. CAL D (CALCIUM CARBONATE + VITAMIN D) [Concomitant]
     Indication: PRODUCT USED FOR UNKNOWN INDICATION
     Dosage: CALCIUM CARBONATE: 500 MG + VITAMIN D 400 UI + VITAMIN D 500 MG
  3. RIVASA [Concomitant]
     Active Substance: ASPIRIN
     Indication: PRODUCT USED FOR UNKNOWN INDICATION
  4. CLOBETASOL PROPIONATE. [Concomitant]
     Active Substance: CLOBETASOL PROPIONATE
     Indication: PRODUCT USED FOR UNKNOWN INDICATION
     Dosage: PRN: AS REQUIRED
     Route: 061
  5. TIOTROPIUM?INH [Concomitant]
     Indication: PRODUCT USED FOR UNKNOWN INDICATION
     Route: 055
  6. CASODEX [Concomitant]
     Active Substance: BICALUTAMIDE
     Indication: PRODUCT USED FOR UNKNOWN INDICATION
  7. CICLESONIDE?INH [Concomitant]
     Indication: PRODUCT USED FOR UNKNOWN INDICATION
     Route: 055
  8. LUPRON DEPOT [Suspect]
     Active Substance: LEUPROLIDE ACETATE
     Indication: PROSTATE CANCER
     Route: 030
     Dates: start: 20160331
  9. NORVASC [Concomitant]
     Active Substance: AMLODIPINE BESYLATE
     Indication: PRODUCT USED FOR UNKNOWN INDICATION
  10. INDACATEROL [Concomitant]
     Active Substance: INDACATEROL
     Indication: PRODUCT USED FOR UNKNOWN INDICATION
     Route: 055
  11. GLYBURIDE. [Concomitant]
     Active Substance: GLYBURIDE
     Indication: PRODUCT USED FOR UNKNOWN INDICATION
  12. NITROGLYCERINE?EMERGENCY [Concomitant]
     Indication: PRODUCT USED FOR UNKNOWN INDICATION
     Route: 055
  13. LASIX [Concomitant]
     Active Substance: FUROSEMIDE
     Indication: PRODUCT USED FOR UNKNOWN INDICATION
  14. CRESTOR (ROSUVASTATINE) [Concomitant]
     Indication: PRODUCT USED FOR UNKNOWN INDICATION
  15. POLYETHYLENE GLYCOL [Concomitant]
     Active Substance: POLYETHYLENE GLYCOLS
     Indication: PRODUCT USED FOR UNKNOWN INDICATION
     Dosage: DISSOLVE 17 GRAMS IN 250 ML LIQUID
     Route: 048

REACTIONS (22)
  - Dyspnoea [Recovered/Resolved with Sequelae]
  - Respiratory disorder [Recovered/Resolved with Sequelae]
  - Arteriosclerosis coronary artery [Unknown]
  - Lung neoplasm malignant [Unknown]
  - Chronic obstructive pulmonary disease [Unknown]
  - Chronic obstructive pulmonary disease [Unknown]
  - Fluid overload [Recovered/Resolved]
  - Chest pain [Recovered/Resolved with Sequelae]
  - Chronic obstructive pulmonary disease [Not Recovered/Not Resolved]
  - Pulmonary mass [Unknown]
  - Fatigue [Not Recovered/Not Resolved]
  - Asthenia [Not Recovered/Not Resolved]
  - Pain [Unknown]
  - Hot flush [Unknown]
  - Prostate cancer metastatic [Unknown]
  - Respiratory failure [Fatal]
  - Coronary angioplasty [Unknown]
  - Prostate cancer [Unknown]
  - Dyspnoea paroxysmal nocturnal [Unknown]
  - Carotid artery occlusion [Unknown]
  - Dyspnoea [Unknown]
  - Hypertension [Unknown]

NARRATIVE: CASE EVENT DATE: 20160415
